FAERS Safety Report 9246040 (Version 2)
Quarter: 2013Q2

REPORT INFORMATION
  Report Type: Spontaneous
  Country: JP (occurrence: JP)
  Receive Date: 20130422
  Receipt Date: 20130502
  Transmission Date: 20140414
  Serious: Yes (Other)
  Sender: FDA-Public Use
  Company Number: PHHY2013JP037714

PATIENT
  Sex: Male

DRUGS (2)
  1. CARBAMAZEPINE [Suspect]
     Indication: CONVULSION
     Route: 048
  2. CLOBAZAM [Concomitant]
     Route: 048

REACTIONS (5)
  - Myoclonic epilepsy [Recovering/Resolving]
  - Ataxia [Unknown]
  - Dysphoria [Unknown]
  - Somnolence [Unknown]
  - Drug ineffective [Unknown]
